FAERS Safety Report 26086986 (Version 1)
Quarter: 2025Q4

REPORT INFORMATION
  Report Type: Spontaneous
  Country: EU (occurrence: EU)
  Receive Date: 20251125
  Receipt Date: 20251125
  Transmission Date: 20260119
  Serious: Yes (Hospitalization, Other)
  Sender: RANBAXY
  Company Number: EU-SUN PHARMACEUTICAL INDUSTRIES LTD-12SUNOX117P

PATIENT
  Age: 64 Year
  Sex: Male

DRUGS (25)
  1. CARBOPLATIN [Suspect]
     Active Substance: CARBOPLATIN
     Indication: Skin test
     Route: 023
  2. CARBOPLATIN [Suspect]
     Active Substance: CARBOPLATIN
     Indication: Skin test
  3. CARBOPLATIN [Suspect]
     Active Substance: CARBOPLATIN
     Indication: Gastric cancer
  4. CISPLATIN [Suspect]
     Active Substance: CISPLATIN
     Indication: Skin test
     Dosage: UNK
     Route: 023
  5. CISPLATIN [Suspect]
     Active Substance: CISPLATIN
     Indication: Skin test
  6. CISPLATIN [Suspect]
     Active Substance: CISPLATIN
     Indication: Gastric cancer
  7. DOCETAXEL [Suspect]
     Active Substance: DOCETAXEL
     Indication: Skin test
     Route: 023
  8. DOCETAXEL [Suspect]
     Active Substance: DOCETAXEL
     Indication: Skin test
  9. OXALIPLATIN [Suspect]
     Active Substance: OXALIPLATIN
     Indication: Chemotherapy
     Dosage: UNK (CYCLICAL; 8 CYCLES)
     Route: 065
  10. OXALIPLATIN [Suspect]
     Active Substance: OXALIPLATIN
     Indication: Skin test
  11. OXALIPLATIN [Suspect]
     Active Substance: OXALIPLATIN
     Indication: Skin test
  12. LEUCOVORIN CALCIUM [Concomitant]
     Active Substance: LEUCOVORIN CALCIUM
     Indication: Chemotherapy
     Route: 023
  13. LEUCOVORIN CALCIUM [Concomitant]
     Active Substance: LEUCOVORIN CALCIUM
     Indication: Skin test
  14. FLUOROURACIL [Concomitant]
     Active Substance: FLUOROURACIL
     Indication: Chemotherapy
     Dosage: UNK
     Route: 023
  15. FLUOROURACIL [Concomitant]
     Active Substance: FLUOROURACIL
     Indication: Skin test
  16. FLUOROURACIL [Concomitant]
     Active Substance: FLUOROURACIL
     Indication: Skin test
  17. FLUOROURACIL [Concomitant]
     Active Substance: FLUOROURACIL
     Indication: Gastric cancer
  18. ONDANSETRON [Concomitant]
     Active Substance: ONDANSETRON
     Indication: Skin test
     Route: 023
  19. ONDANSETRON [Concomitant]
     Active Substance: ONDANSETRON
     Indication: Skin test
  20. ONDANSETRON [Concomitant]
     Active Substance: ONDANSETRON
     Indication: Adjuvant therapy
  21. METHYLPREDNISOLONE [Concomitant]
     Active Substance: METHYLPREDNISOLONE
     Indication: Skin test
     Route: 023
  22. METHYLPREDNISOLONE [Concomitant]
     Active Substance: METHYLPREDNISOLONE
     Indication: Skin test
  23. METHYLPREDNISOLONE [Concomitant]
     Active Substance: METHYLPREDNISOLONE
     Indication: Adjuvant therapy
  24. TAXOTERE [Concomitant]
     Active Substance: DOCETAXEL
     Indication: Chemotherapy
     Route: 065
  25. TAXOTERE [Concomitant]
     Active Substance: DOCETAXEL
     Indication: Gastric cancer

REACTIONS (6)
  - Type IV hypersensitivity reaction [Recovered/Resolved with Sequelae]
  - Rash maculo-papular [Recovered/Resolved with Sequelae]
  - Rash [Unknown]
  - Off label use [Unknown]
  - Pruritus [Recovered/Resolved]
  - Skin test positive [Unknown]
